FAERS Safety Report 11271718 (Version 1)
Quarter: 2015Q3

REPORT INFORMATION
  Report Type: Spontaneous
  Country: US (occurrence: US)
  Receive Date: 20150715
  Receipt Date: 20150715
  Transmission Date: 20151125
  Serious: Yes (Death)
  Sender: FDA-Public Use
  Company Number: US-BEH-2015051970

PATIENT
  Age: 58 Year
  Sex: Male

DRUGS (4)
  1. ALBUMIN [Suspect]
     Active Substance: ALBUMIN (HUMAN)
     Indication: PERITONITIS BACTERIAL
     Dosage: 1.5 G/KG ON FIRST DAY AND 1 G/KG ON THIRD DAY.
     Route: 042
  2. ALBUMIN [Suspect]
     Active Substance: ALBUMIN (HUMAN)
     Indication: HEPATORENAL SYNDROME
     Dosage: 1.5 G/KG ON FIRST DAY AND 1 G/KG ON THIRD DAY.
     Route: 042
  3. CEFTRIAXONE. [Concomitant]
     Active Substance: CEFTRIAXONE
     Route: 042
  4. ALBUMIN [Suspect]
     Active Substance: ALBUMIN (HUMAN)
     Indication: HEPATIC CIRRHOSIS
     Dosage: 1.5 G/KG ON FIRST DAY AND 1 G/KG ON THIRD DAY.
     Route: 042

REACTIONS (2)
  - Renal failure [Fatal]
  - No therapeutic response [Fatal]
